FAERS Safety Report 17195391 (Version 2)
Quarter: 2021Q2

REPORT INFORMATION
  Report Type: Spontaneous
  Country: GB (occurrence: GB)
  Receive Date: 20191224
  Receipt Date: 20210621
  Transmission Date: 20210716
  Serious: Yes (Hospitalization)
  Sender: FDA-Public Use
  Company Number: GB-TEVA-2019-GB-1156820

PATIENT
  Age: 64 Year
  Sex: Male
  Weight: 158.4 kg

DRUGS (11)
  1. FUROSEMIDE. [Suspect]
     Active Substance: FUROSEMIDE
     Indication: DIURETIC THERAPY
     Dosage: 40 MILLIGRAM DAILY; IN THE MORNING
     Route: 048
     Dates: start: 20180927, end: 20181114
  2. IRBESARTAN. [Suspect]
     Active Substance: IRBESARTAN
     Indication: BLOOD PRESSURE MANAGEMENT
     Dosage: 300 MILLIGRAM DAILY;
     Route: 048
     Dates: start: 20171204, end: 20191114
  3. METFORMIN [Suspect]
     Active Substance: METFORMIN HYDROCHLORIDE
     Indication: GLYCOSYLATED HAEMOGLOBIN
     Dosage: 2 GRAM DAILY;
     Route: 048
     Dates: start: 20171204, end: 20191114
  4. ALLOPURINOL. [Concomitant]
     Active Substance: ALLOPURINOL
  5. METFORMIN HYDROCHLORIDE. [Concomitant]
     Active Substance: METFORMIN HYDROCHLORIDE
  6. OZEMPIC [Suspect]
     Active Substance: SEMAGLUTIDE
     Indication: TYPE 1 DIABETES MELLITUS
     Dosage: 1 MG
     Route: 051
     Dates: start: 20190808, end: 20191125
  7. IRBESARTAN HYDROCHLORIDE [Concomitant]
     Active Substance: IRBESARTAN
  8. BEZAFIBRATE [Concomitant]
     Active Substance: BEZAFIBRATE
  9. OZEMPIC [Suspect]
     Active Substance: SEMAGLUTIDE
     Indication: GLYCOSYLATED HAEMOGLOBIN
  10. GLICLAZIDE [Concomitant]
     Active Substance: GLICLAZIDE
  11. PIOGLITAZONE HYDROCHLORIDE. [Concomitant]
     Active Substance: PIOGLITAZONE HYDROCHLORIDE

REACTIONS (3)
  - Vomiting [Recovering/Resolving]
  - Nausea [Recovering/Resolving]
  - Acute kidney injury [Recovering/Resolving]

NARRATIVE: CASE EVENT DATE: 20191101
